FAERS Safety Report 5289089-8 (Version None)
Quarter: 2007Q1

REPORT INFORMATION
  Report Type: 
  Country: None (occurrence: None)
  Receive Date: 20070122
  Receipt Date: 20060705
  Transmission Date: 20070707
  Serious: Yes (Other)
  Sender: FDA-Public Use
  Company Number: PHEH2006US05321

PATIENT
  Age: 58 Year
  Sex: Male

DRUGS (6)
  1. SANDOSTATIN LAR [Suspect]
     Indication: CARCINOID TUMOUR
     Dosage: SEE IMAGE
     Route: 030
     Dates: end: 20060401
  2. SANDOSTATIN LAR [Suspect]
     Indication: CARCINOID TUMOUR
     Dosage: SEE IMAGE
     Route: 030
     Dates: start: 20020101
  3. MORPHINE SULFATE [Concomitant]
  4. LEXAPRO [Concomitant]
  5. NEXIUM [Concomitant]
  6. TESTOSTERONE [Concomitant]

REACTIONS (2)
  - ASTHENIA [None]
  - HYPERKINESIA [None]
